FAERS Safety Report 4918515-6 (Version None)
Quarter: 2006Q1

REPORT INFORMATION
  Report Type: 
  Country: None (occurrence: None)
  Receive Date: 20060214
  Receipt Date: 20060125
  Transmission Date: 20060701
  Serious: Yes (Hospitalization)
  Sender: FDA-Public Use
  Company Number: DE200601004642

PATIENT
  Sex: Male

DRUGS (6)
  1. DULOXETINE HYDROCHLORIDE (DULOXETINE HYDROCHLORIDE) CAPSULE [Suspect]
     Indication: DEPRESSION
     Dosage: 120 MG, ORAL
     Route: 048
     Dates: start: 20050919, end: 20051117
  2. PROMETHAZINE [Concomitant]
  3. DIAZEPAM [Concomitant]
  4. CARMEN (LERCANIDIPINE) [Concomitant]
  5. TENORMIN [Concomitant]
  6. CEBION (ASCORBIC ACID) [Concomitant]

REACTIONS (2)
  - DIZZINESS [None]
  - HYPERTENSION [None]
